FAERS Safety Report 8472188-7 (Version None)
Quarter: 2012Q2

REPORT INFORMATION
  Report Type: 
  Country: None (occurrence: None)
  Receive Date: 20120627
  Receipt Date: 20120619
  Transmission Date: 20120825
  Serious: Yes (Disabling)
  Sender: FDA-Public Use
  Company Number: NL-MERCK-1206USA03022

PATIENT
  Age: 55 Year
  Sex: Female
  Weight: 103 kg

DRUGS (9)
  1. MONO-CEDOCARD RETARD [Concomitant]
     Route: 048
  2. ACENOCOUMAROL [Concomitant]
     Route: 048
  3. ZOCOR [Suspect]
     Indication: HYPERCHOLESTEROLAEMIA
     Route: 048
     Dates: start: 20051223, end: 20060314
  4. NEDIOS [Concomitant]
     Route: 048
     Dates: start: 20070618, end: 20070823
  5. GEMFIBROZIL [Concomitant]
     Route: 048
  6. PRAVASTATIN [Suspect]
     Indication: HYPERCHOLESTEROLAEMIA
     Route: 048
  7. NIASPAN [Concomitant]
     Route: 048
  8. LIPITOR [Suspect]
     Indication: HYPERCHOLESTEROLAEMIA
     Route: 048
     Dates: start: 20030525, end: 20040314
  9. COVERSYL PLUS (INDAPAMIDE (+) PERINDOPRIL ARGININE) [Concomitant]
     Route: 048

REACTIONS (2)
  - BACK PAIN [None]
  - WEIGHT INCREASED [None]
